FAERS Safety Report 10673961 (Version 1)
Quarter: 2014Q4

REPORT INFORMATION
  Report Type: Spontaneous
  Country: US (occurrence: None)
  Receive Date: 20141223
  Receipt Date: 20141223
  Transmission Date: 20150529
  Serious: Yes (Disabling)
  Sender: FDA-Public Use
  Company Number: None

PATIENT
  Sex: Female
  Weight: 67.13 kg

DRUGS (10)
  1. LEVOTHYROXINE [Concomitant]
     Active Substance: LEVOTHYROXINE
  2. LIPITOR [Concomitant]
     Active Substance: ATORVASTATIN CALCIUM
  3. MAGNESIUM [Concomitant]
     Active Substance: MAGNESIUM
  4. D-3 [Concomitant]
     Active Substance: CHOLECALCIFEROL
  5. MULTI VIT (SILVER CENTRUM) [Concomitant]
  6. ASPIRIN. [Concomitant]
     Active Substance: ASPIRIN
  7. CALCIUM [Concomitant]
     Active Substance: CALCIUM
  8. MELATONIN [Concomitant]
     Active Substance: MELATONIN
  9. PROLIA [Suspect]
     Active Substance: DENOSUMAB
  10. DIOVAN [Concomitant]
     Active Substance: VALSARTAN

REACTIONS (9)
  - Pain [None]
  - Muscle spasms [None]
  - Chest pain [None]
  - Arthralgia [None]
  - Pain in extremity [None]
  - Dizziness [None]
  - Headache [None]
  - Insomnia [None]
  - Fall [None]
